FAERS Safety Report 16288357 (Version 1)
Quarter: 2019Q2

REPORT INFORMATION
  Report Type: Spontaneous
  Country: US (occurrence: US)
  Receive Date: 20190508
  Receipt Date: 20190508
  Transmission Date: 20190711
  Serious: Yes (Death, Other)
  Sender: FDA-Public Use
  Company Number: US-ALS-2019-000002

PATIENT
  Age: 27 Year
  Sex: Male

DRUGS (3)
  1. MITRAGYNINE [Interacting]
     Active Substance: HERBALS\MITRAGYNINE
  2. QUETIAPINE. [Suspect]
     Active Substance: QUETIAPINE
  3. VALPROIC ACID. [Concomitant]
     Active Substance: VALPROIC ACID

REACTIONS (2)
  - Drug interaction [Fatal]
  - Toxicity to various agents [Fatal]
